FAERS Safety Report 8521239-X (Version None)
Quarter: 2012Q3

REPORT INFORMATION
  Report Type: 
  Country: None (occurrence: None)
  Receive Date: 20120719
  Receipt Date: 20120704
  Transmission Date: 20120928
  Serious: Yes (Death, Other)
  Sender: FDA-Public Use
  Company Number: JP-ROCHE-1085958

PATIENT
  Age: 60 Year
  Sex: Female

DRUGS (10)
  1. ANASTROZOLE [Concomitant]
     Route: 048
  2. XELODA [Suspect]
     Indication: BREAST CANCER METASTATIC
     Dosage: THREE COURSES
     Route: 048
     Dates: start: 20061101
  3. HERCEPTIN [Concomitant]
     Dates: start: 20060501
  4. DOCETAXEL [Concomitant]
     Indication: BREAST CANCER METASTATIC
     Route: 041
     Dates: start: 20071101
  5. ANASTROZOLE [Concomitant]
     Indication: BREAST CANCER METASTATIC
     Route: 048
     Dates: start: 20061101
  6. ANASTROZOLE [Concomitant]
     Route: 048
     Dates: start: 20071101
  7. HERCEPTIN [Concomitant]
     Route: 041
     Dates: start: 20071101
  8. HERCEPTIN [Concomitant]
     Route: 041
  9. XELODA [Suspect]
     Dosage: DOSAGE IS UNCERTAIN.
     Route: 048
  10. HERCEPTIN [Concomitant]
     Indication: BREAST CANCER METASTATIC
     Route: 041
     Dates: start: 20061101

REACTIONS (6)
  - FATIGUE [None]
  - DIARRHOEA [None]
  - DISEASE PROGRESSION [None]
  - DECREASED APPETITE [None]
  - NAUSEA [None]
  - WHITE BLOOD CELL COUNT DECREASED [None]
